FAERS Safety Report 5746473-3 (Version None)
Quarter: 2008Q2

REPORT INFORMATION
  Report Type: 
  Country: None (occurrence: None)
  Receive Date: 20080522
  Receipt Date: 20080515
  Transmission Date: 20081010
  Serious: Yes (Other)
  Sender: FDA-Public Use
  Company Number: B0521408A

PATIENT
  Age: 81 Year
  Sex: Female
  Weight: 54 kg

DRUGS (3)
  1. ARIXTRA [Suspect]
     Dosage: 2.5MG PER DAY
     Route: 058
     Dates: start: 20060202, end: 20060303
  2. DAFALGAN [Concomitant]
     Route: 065
  3. ANALGESIA [Concomitant]
     Indication: PAIN PROPHYLAXIS
     Route: 065

REACTIONS (3)
  - DISLOCATION OF JOINT PROSTHESIS [None]
  - EPISTAXIS [None]
  - INTENTIONAL DRUG MISUSE [None]
